FAERS Safety Report 12549529 (Version 1)
Quarter: 2016Q3

REPORT INFORMATION
  Report Type: Spontaneous
  Country: US (occurrence: US)
  Receive Date: 20160712
  Receipt Date: 20160712
  Transmission Date: 20161109
  Serious: Yes (Other)
  Sender: FDA-Public Use
  Company Number: US-ENDO PHARMACEUTICALS INC.-2015-004308

PATIENT
  Sex: Male

DRUGS (1)
  1. EDEX [Suspect]
     Active Substance: ALPROSTADIL
     Indication: ERECTILE DYSFUNCTION
     Dosage: ONE 20 MCG INJECTION
     Route: 065
     Dates: start: 20151117

REACTIONS (2)
  - Painful erection [Recovered/Resolved]
  - Erection increased [Recovered/Resolved]

NARRATIVE: CASE EVENT DATE: 20151117
